FAERS Safety Report 6698972-8 (Version None)
Quarter: 2010Q2

REPORT INFORMATION
  Report Type: 
  Country: None (occurrence: None)
  Receive Date: 20100427
  Receipt Date: 20100420
  Transmission Date: 20101027
  Serious: Yes (Hospitalization)
  Sender: FDA-Public Use
  Company Number: B0648391A

PATIENT
  Age: 81 Year
  Sex: Female

DRUGS (8)
  1. AUGMENTIN '125' [Suspect]
     Indication: URINARY TRACT INFECTION
     Dosage: 1125MG PER DAY
     Route: 048
     Dates: start: 20100310, end: 20100317
  2. CEPHALEXIN [Suspect]
     Indication: URINARY TRACT INFECTION
     Dosage: 1500MG PER DAY
     Route: 048
     Dates: start: 20100321, end: 20100328
  3. WARFARIN SODIUM [Concomitant]
     Indication: ATRIAL FIBRILLATION
     Route: 048
  4. BISOPROLOL [Concomitant]
     Indication: HYPERTENSION
     Route: 048
  5. SIMVASTATIN [Concomitant]
     Route: 048
  6. FUROSEMIDE [Concomitant]
     Indication: HYPERTENSION
     Route: 048
  7. RAMIPRIL [Concomitant]
  8. OMEPRAZOLE [Concomitant]

REACTIONS (5)
  - DIARRHOEA [None]
  - FAECES PALE [None]
  - LIVER FUNCTION TEST ABNORMAL [None]
  - URINE COLOUR ABNORMAL [None]
  - VOMITING [None]
